FAERS Safety Report 23916444 (Version 1)
Quarter: 2024Q2

REPORT INFORMATION
  Report Type: Spontaneous
  Country: US (occurrence: None)
  Receive Date: 20240528
  Receipt Date: 20240528
  Transmission Date: 20240715
  Serious: Yes (Disabling)
  Sender: FDA-Public Use
  Company Number: None

PATIENT
  Age: 48 Year
  Sex: Female
  Weight: 74.7 kg

DRUGS (1)
  1. PAXLOVID [Suspect]
     Active Substance: NIRMATRELVIR\RITONAVIR
     Indication: COVID-19
     Dates: start: 20220815, end: 20220820

REACTIONS (5)
  - Abdominal pain upper [None]
  - Decreased appetite [None]
  - Nausea [None]
  - Night sweats [None]
  - Unevaluable event [None]

NARRATIVE: CASE EVENT DATE: 20220815
